FAERS Safety Report 12869050 (Version 5)
Quarter: 2017Q1

REPORT INFORMATION
  Report Type: Spontaneous
  Country: US (occurrence: US)
  Receive Date: 20161021
  Receipt Date: 20170307
  Transmission Date: 20170428
  Serious: Yes (Hospitalization)
  Sender: FDA-Public Use
  Company Number: US-PFIZER INC-2016487991

PATIENT
  Age: 57 Year
  Sex: Male
  Weight: 58 kg

DRUGS (5)
  1. SPIRONOLACTONE. [Concomitant]
     Active Substance: SPIRONOLACTONE
     Indication: DIURETIC THERAPY
     Dosage: 100 MG, UNK
     Dates: start: 20160727, end: 20170203
  2. PANTOPRAZOLE [Suspect]
     Active Substance: PANTOPRAZOLE SODIUM
     Indication: ULCER
     Dosage: 40 MG, 1X/DAY (MORNING)
     Route: 048
     Dates: start: 201608, end: 20170117
  3. NADOLOL. [Concomitant]
     Active Substance: NADOLOL
     Indication: ABDOMINAL DISCOMFORT
     Dosage: 40 MG, UNK
     Dates: start: 201608
  4. PANTOPRAZOLE [Suspect]
     Active Substance: PANTOPRAZOLE SODIUM
     Indication: OESOPHAGITIS
  5. FUROSEMIDE. [Concomitant]
     Active Substance: FUROSEMIDE
     Indication: DIURETIC THERAPY
     Dosage: 40 MG, UNK
     Dates: start: 20160628, end: 20170203

REACTIONS (5)
  - Amnesia [Recovered/Resolved]
  - Night sweats [Not Recovered/Not Resolved]
  - Alopecia [Not Recovered/Not Resolved]
  - Constipation [Recovered/Resolved]
  - Therapeutic response unexpected [Recovered/Resolved]

NARRATIVE: CASE EVENT DATE: 201608
